FAERS Safety Report 8427527-X (Version None)
Quarter: 2012Q2

REPORT INFORMATION
  Report Type: 
  Country: None (occurrence: None)
  Receive Date: 20120323
  Receipt Date: 20111215
  Transmission Date: 20120825
  Serious: Yes (Other)
  Sender: FDA-Public Use
  Company Number: 163-21880-11080709

PATIENT
  Age: 63 Year
  Sex: Male

DRUGS (11)
  1. PRILOSEC [Concomitant]
  2. ASPIRIN [Concomitant]
  3. REGLAN [Concomitant]
  4. REVLIMID [Suspect]
     Indication: MULTIPLE MYELOMA
     Dosage: 25 MG, 1 IN 1 D, PO ; 15 MG, DAYS 1 - 21, Q28D, PO
     Route: 048
     Dates: start: 20071001, end: 20100517
  5. REVLIMID [Suspect]
     Indication: MULTIPLE MYELOMA
     Dosage: 25 MG, 1 IN 1 D, PO ; 15 MG, DAYS 1 - 21, Q28D, PO
     Route: 048
     Dates: start: 20100517
  6. MS CONTIN [Concomitant]
  7. AREDIA [Concomitant]
  8. PERCOCET [Concomitant]
  9. PHENERGAN HCL [Concomitant]
  10. PROMETHAZINE [Concomitant]
  11. MORPHINE [Concomitant]

REACTIONS (4)
  - PANCYTOPENIA [None]
  - FOLLICULITIS [None]
  - CONTUSION [None]
  - BLISTER [None]
